FAERS Safety Report 17825855 (Version 1)
Quarter: 2020Q2

REPORT INFORMATION
  Report Type: Spontaneous
  Country: US (occurrence: US)
  Receive Date: 20200526
  Receipt Date: 20200526
  Transmission Date: 20200714
  Serious: No
  Sender: FDA-Public Use
  Company Number: US-JNJFOC-20200504677

PATIENT
  Age: 60 Year
  Sex: Female
  Weight: 66.74 kg

DRUGS (1)
  1. WOMENS ROGAINE UNSCENTED [Suspect]
     Active Substance: MINOXIDIL
     Indication: ALOPECIA
     Dosage: HALF A CAPFUL, THE PATIENT LAST USED THE PRODUCT ON 21-APR-2020.
     Route: 061
     Dates: start: 20200401

REACTIONS (3)
  - Application site erythema [Not Recovered/Not Resolved]
  - Application site acne [Recovered/Resolved]
  - Application site pain [Not Recovered/Not Resolved]

NARRATIVE: CASE EVENT DATE: 20200415
